FAERS Safety Report 12429560 (Version 1)
Quarter: 2016Q2

REPORT INFORMATION
  Report Type: Spontaneous
  Country: US (occurrence: US)
  Receive Date: 20160602
  Receipt Date: 20160602
  Transmission Date: 20160815
  Serious: No
  Sender: FDA-Public Use
  Company Number: US-MDT-ADR-2015-02375

PATIENT
  Age: 58 Year
  Sex: Female

DRUGS (11)
  1. FOLIC ACID. [Suspect]
     Active Substance: FOLIC ACID
  2. AMPYRA [Suspect]
     Active Substance: DALFAMPRIDINE
  3. ESTRIOL [Suspect]
     Active Substance: ESTRIOL
  4. BIOTIN [Suspect]
     Active Substance: BIOTIN
  5. MODAFINIL. [Suspect]
     Active Substance: MODAFINIL
  6. CRANBERRY TABLETS. [Suspect]
     Active Substance: CRANBERRY
  7. WELLBUTRIN [Suspect]
     Active Substance: BUPROPION HYDROCHLORIDE
  8. VITAMIN D [Suspect]
     Active Substance: CHOLECALCIFEROL
  9. NALTREXONE [Suspect]
     Active Substance: NALTREXONE
  10. COPAXONE [Suspect]
     Active Substance: GLATIRAMER ACETATE
  11. COMPOUNDED BACLOFEN [Suspect]
     Active Substance: BACLOFEN
     Dosage: 89.9MCG/DAY
     Route: 037

REACTIONS (20)
  - Groin pain [Unknown]
  - Muscle spasms [Unknown]
  - Urinary retention [Unknown]
  - Spondylolisthesis [Unknown]
  - Balance disorder [Unknown]
  - Pain in extremity [Unknown]
  - Discomfort [Unknown]
  - Paraesthesia [Unknown]
  - Gait disturbance [Unknown]
  - Pain [Unknown]
  - Muscular weakness [Unknown]
  - Spinal column stenosis [Unknown]
  - Musculoskeletal pain [Unknown]
  - Osteopenia [Unknown]
  - Arthralgia [Unknown]
  - Lumbar spinal stenosis [Unknown]
  - Multiple sclerosis [Unknown]
  - Hypoaesthesia [Unknown]
  - Dysuria [Unknown]
  - No therapeutic response [Unknown]
